FAERS Safety Report 15468299 (Version 3)
Quarter: 2018Q4

REPORT INFORMATION
  Report Type: Report from Study
  Country: BE (occurrence: BE)
  Receive Date: 20181005
  Receipt Date: 20181108
  Transmission Date: 20190204
  Serious: Yes (Other)
  Sender: FDA-Public Use
  Company Number: BE-BAYER-2017-058173

PATIENT
  Age: 75 Year
  Sex: Male

DRUGS (5)
  1. STIVARGA [Suspect]
     Active Substance: REGORAFENIB
     Indication: GASTROINTESTINAL STROMAL TUMOUR
     Dosage: DAILY DOSE 120 MG
     Dates: start: 20170222, end: 2017
  2. STIVARGA [Suspect]
     Active Substance: REGORAFENIB
     Indication: GASTROINTESTINAL STROMAL TUMOUR
     Dosage: DAILY DOSE 120 MG
     Dates: end: 20181029
  3. CRESTOR [Concomitant]
     Active Substance: ROSUVASTATIN CALCIUM
  4. SUTENT [Concomitant]
     Active Substance: SUNITINIB MALATE
  5. GLIVEC [Concomitant]
     Active Substance: IMATINIB MESYLATE

REACTIONS (18)
  - Weight decreased [None]
  - Abdominal pain [Recovered/Resolved]
  - Infarction [Recovered/Resolved with Sequelae]
  - Off label use [None]
  - Flank pain [Recovered/Resolved]
  - C-reactive protein increased [None]
  - Fatigue [Not Recovered/Not Resolved]
  - Constipation [Not Recovered/Not Resolved]
  - Weight decreased [None]
  - Fatigue [Not Recovered/Not Resolved]
  - Abdominal lymphadenopathy [None]
  - Palmar-plantar erythrodysaesthesia syndrome [Not Recovered/Not Resolved]
  - Diarrhoea [Not Recovered/Not Resolved]
  - Decreased appetite [Not Recovered/Not Resolved]
  - Diarrhoea [Not Recovered/Not Resolved]
  - Diarrhoea [None]
  - Weight decreased [Not Recovered/Not Resolved]
  - Muscle spasms [Not Recovered/Not Resolved]

NARRATIVE: CASE EVENT DATE: 20170413
